FAERS Safety Report 12630841 (Version 2)
Quarter: 2016Q3

REPORT INFORMATION
  Report Type: Spontaneous
  Country: US (occurrence: US)
  Receive Date: 20160808
  Receipt Date: 20160906
  Transmission Date: 20161109
  Serious: No
  Sender: FDA-Public Use
  Company Number: US-PFIZER INC-2016354787

PATIENT
  Age: 87 Year
  Sex: Female

DRUGS (7)
  1. XELJANZ [Suspect]
     Active Substance: TOFACITINIB CITRATE
     Indication: RHEUMATOID ARTHRITIS
     Dosage: 15 MG, 2X/DAY
     Dates: start: 20160403, end: 20160728
  2. CENTRUM SILVER- WOMEN 50+ [Concomitant]
     Dosage: 1 DF, DAILY (1 A DAY VITAMIN)
  3. PREDNISONE. [Concomitant]
     Active Substance: PREDNISONE
     Dosage: 4 MG, DAILY (01 MG 4 EACH MORNING)
     Dates: start: 20160728
  4. CALCIUM [Concomitant]
     Active Substance: CALCIUM
     Dosage: 600 MG, DAILY (1 A DAY)
  5. VITAMIN D [Concomitant]
     Active Substance: CHOLECALCIFEROL
     Dosage: 2000 IU, DAILY (1 A DAY)
  6. FOLIC ACID. [Concomitant]
     Active Substance: FOLIC ACID
     Dosage: 1 MG, DAILY (1 A DAY)
  7. LEVOTHYROXINE. [Concomitant]
     Active Substance: LEVOTHYROXINE
     Dosage: 100 MG, DAILY (1 A DAY)

REACTIONS (2)
  - Sinusitis [Unknown]
  - Fatigue [Unknown]

NARRATIVE: CASE EVENT DATE: 201606
